FAERS Safety Report 7954929-8 (Version None)
Quarter: 2011Q4

REPORT INFORMATION
  Report Type: 
  Country: None (occurrence: None)
  Receive Date: 20111202
  Receipt Date: 20111201
  Transmission Date: 20120403
  Serious: No
  Sender: FDA-Public Use
  Company Number: US-BAYER-2011-115716

PATIENT
  Age: 31 Year
  Sex: Male

DRUGS (1)
  1. ULTRAVIST 150 [Suspect]
     Indication: COMPUTERISED TOMOGRAM ABDOMEN
     Dosage: 80 ML, ONCE
     Route: 042
     Dates: start: 20111130, end: 20111130

REACTIONS (2)
  - PRURITUS [None]
  - URTICARIA [None]
